FAERS Safety Report 25690805 (Version 2)
Quarter: 2025Q3

REPORT INFORMATION
  Report Type: Report from Study
  Country: EU (occurrence: EU)
  Receive Date: 20250818
  Receipt Date: 20250827
  Transmission Date: 20251021
  Serious: Yes (Death, Other)
  Sender: SANOFI AVENTIS
  Company Number: EU-EMA-20170315-vsevhpdd-101650217

PATIENT
  Age: 67 Year
  Sex: Male

DRUGS (3)
  1. DOCETAXEL [Suspect]
     Active Substance: DOCETAXEL
     Indication: Squamous cell carcinoma of head and neck
     Dosage: 75 MG/M2, Q3W
  2. CISPLATIN [Suspect]
     Active Substance: CISPLATIN
     Indication: Squamous cell carcinoma of head and neck
     Dosage: 75 MG/M2, Q3W
  3. FLUOROURACIL [Suspect]
     Active Substance: FLUOROURACIL
     Indication: Squamous cell carcinoma of head and neck
     Dosage: 75 MG/M2, QD, 5 DAY/3 WEEKS

REACTIONS (1)
  - Pneumonia aspiration [Fatal]
